FAERS Safety Report 17799746 (Version 1)
Quarter: 2020Q2

REPORT INFORMATION
  Report Type: Spontaneous
  Country: DE (occurrence: DE)
  Receive Date: 20200518
  Receipt Date: 20200518
  Transmission Date: 20200714
  Serious: Yes (Hospitalization)
  Sender: FDA-Public Use
  Company Number: DE-MYLANLABS-2020M1048250

PATIENT
  Age: 59 Year
  Sex: Male

DRUGS (2)
  1. HYDROCORTISONE. [Suspect]
     Active Substance: HYDROCORTISONE
     Indication: PRODUCT USED FOR UNKNOWN INDICATION
     Dosage: 5 MG, 1-0-0-0
     Route: 048
  2. LEVOTHYROXINE SODIUM. [Concomitant]
     Active Substance: LEVOTHYROXINE SODIUM
     Dosage: 75 ?G, 1-0-0-0
     Route: 048

REACTIONS (12)
  - Fatigue [Unknown]
  - Ichthyosis [Unknown]
  - Erythema [Unknown]
  - Dizziness [Unknown]
  - Chills [Unknown]
  - Polyuria [Unknown]
  - Memory impairment [Unknown]
  - Feeling hot [Unknown]
  - Disturbance in attention [Unknown]
  - Skin exfoliation [Unknown]
  - General physical health deterioration [Unknown]
  - Vomiting [Unknown]
